FAERS Safety Report 24095177 (Version 2)
Quarter: 2024Q3

REPORT INFORMATION
  Report Type: Report from Study
  Country: TW (occurrence: TW)
  Receive Date: 20240716
  Receipt Date: 20240806
  Transmission Date: 20241017
  Serious: Yes (Death)
  Sender: BOEHRINGER INGELHEIM
  Company Number: TW-BoehringerIngelheim-2024-BI-039946

PATIENT
  Age: 81 Year
  Sex: Female
  Weight: 44.4 kg

DRUGS (1)
  1. OFEV [Suspect]
     Active Substance: NINTEDANIB
     Indication: Idiopathic pulmonary fibrosis
     Route: 048
     Dates: start: 20230426, end: 202402

REACTIONS (1)
  - Death [Fatal]

NARRATIVE: CASE EVENT DATE: 20240201
